FAERS Safety Report 9442284 (Version 1)
Quarter: 2013Q3

REPORT INFORMATION
  Report Type: Spontaneous
  Country: US (occurrence: US)
  Receive Date: 20130806
  Receipt Date: 20130806
  Transmission Date: 20140515
  Serious: No
  Sender: FDA-Public Use
  Company Number: US-GLAXOSMITHKLINE-A0984603A

PATIENT
  Age: 50 Year
  Sex: Male

DRUGS (14)
  1. ADVAIR [Suspect]
     Indication: CHRONIC OBSTRUCTIVE PULMONARY DISEASE
     Dosage: 1PUFF SEE DOSAGE TEXT
     Route: 055
     Dates: start: 20120101
  2. AMIODARONE [Suspect]
     Dates: end: 201206
  3. ATIVAN [Concomitant]
  4. LISINOPRIL [Concomitant]
  5. ASPIRIN [Concomitant]
  6. AMLODIPINE [Concomitant]
  7. RANITIDINE [Concomitant]
  8. VISTARIL [Concomitant]
  9. PLAVIX [Concomitant]
  10. SOMA [Concomitant]
  11. ULTRAM [Concomitant]
  12. ZANAFLEX [Concomitant]
  13. HYDROCODONE [Concomitant]
  14. AMBIEN [Concomitant]

REACTIONS (5)
  - Chills [Not Recovered/Not Resolved]
  - Headache [Not Recovered/Not Resolved]
  - Thyroid disorder [Unknown]
  - Blood pressure decreased [Unknown]
  - Drug administration error [Unknown]
